FAERS Safety Report 17097424 (Version 3)
Quarter: 2020Q1

REPORT INFORMATION
  Report Type: Other
  Country: CA (occurrence: CA)
  Receive Date: 20191202
  Receipt Date: 20200120
  Transmission Date: 20200409
  Serious: Yes (Hospitalization, Other)
  Sender: FDA-Public Use
  Company Number: CA-APOTEX-2019AP025462

PATIENT
  Age: 71 Year
  Sex: Male

DRUGS (7)
  1. SANDOSTATIN [Suspect]
     Active Substance: OCTREOTIDE ACETATE
     Dosage: 30 MG, Q.M.T.
     Route: 030
  2. ASPIRIN                            /00002701/ [Concomitant]
     Active Substance: ASPIRIN
     Indication: PRODUCT USED FOR UNKNOWN INDICATION
     Dosage: UNK
     Route: 065
  3. SANDOSTATIN [Suspect]
     Active Substance: OCTREOTIDE ACETATE
     Dosage: 60 MG, Q.M.T.
     Route: 030
  4. AMIODARONE [Concomitant]
     Active Substance: AMIODARONE
     Indication: PRODUCT USED FOR UNKNOWN INDICATION
     Dosage: UNK
     Route: 065
  5. METFORMIN [Suspect]
     Active Substance: METFORMIN HYDROCHLORIDE
     Indication: PRODUCT USED FOR UNKNOWN INDICATION
     Dosage: UNK
     Route: 065
  6. SANDOSTATIN [Suspect]
     Active Substance: OCTREOTIDE ACETATE
     Indication: NEUROENDOCRINE CARCINOMA METASTATIC
     Dosage: 40 MG, Q.M.T.
     Route: 030
  7. SANDOSTATIN [Suspect]
     Active Substance: OCTREOTIDE ACETATE
     Dosage: 100 MG, TID (THERAPY DURATION: 159 (UNIT NOT REPORTED))
     Route: 058

REACTIONS (35)
  - Blood glucose fluctuation [Recovered/Resolved]
  - Decreased appetite [Recovered/Resolved]
  - Feeling abnormal [Recovered/Resolved]
  - Feeling hot [Recovered/Resolved]
  - Haematoma [Recovered/Resolved]
  - Pain in extremity [Recovered/Resolved]
  - Therapy non-responder [Recovered/Resolved]
  - Decreased interest [Recovered/Resolved]
  - Heart rate increased [Recovered/Resolved]
  - Weight decreased [Recovered/Resolved]
  - Fatigue [Recovered/Resolved]
  - Angina pectoris [Recovered/Resolved]
  - Arthralgia [Recovered/Resolved]
  - Head injury [Recovered/Resolved]
  - Hypokinesia [Recovered/Resolved]
  - Injection site bruising [Recovered/Resolved]
  - Asthenia [Recovered/Resolved]
  - Dizziness [Recovered/Resolved]
  - Ocular hyperaemia [Recovered/Resolved]
  - Blood pressure systolic increased [Recovered/Resolved]
  - Gastrooesophageal reflux disease [Recovered/Resolved]
  - Neuroendocrine carcinoma metastatic [Recovered/Resolved]
  - Abdominal pain [Recovered/Resolved]
  - Blood pressure diastolic decreased [Recovered/Resolved]
  - Confusional state [Recovered/Resolved]
  - Fall [Recovered/Resolved]
  - Malignant neoplasm progression [Recovered/Resolved]
  - Erythema [Recovered/Resolved]
  - Heart rate decreased [Recovered/Resolved]
  - Mood altered [Recovered/Resolved]
  - Needle issue [Recovered/Resolved]
  - Abdominal distension [Recovered/Resolved]
  - Depression [Recovered/Resolved]
  - Musculoskeletal pain [Recovered/Resolved]
  - Flushing [Recovered/Resolved]
